FAERS Safety Report 5769936-3 (Version None)
Quarter: 2008Q2

REPORT INFORMATION
  Report Type: 
  Country: None (occurrence: None)
  Receive Date: 20080613
  Receipt Date: 20080414
  Transmission Date: 20081010
  Serious: No
  Sender: FDA-Public Use
  Company Number: US-ABBOTT-08P-163-0447318-00

PATIENT
  Sex: Female

DRUGS (2)
  1. HUMIRA [Suspect]
     Indication: CROHN'S DISEASE
     Route: 058
     Dates: start: 20070401
  2. COLESEVELAM HYDROCHLORIDE [Concomitant]
     Indication: BLOOD CHOLESTEROL
     Dosage: 2 TABLETS X 4 DAILY

REACTIONS (1)
  - ACCIDENTAL EXPOSURE [None]
